FAERS Safety Report 7811895-3 (Version None)
Quarter: 2011Q4

REPORT INFORMATION
  Report Type: 
  Country: None (occurrence: None)
  Receive Date: 20111013
  Receipt Date: 20111007
  Transmission Date: 20120403
  Serious: Yes (Hospitalization)
  Sender: FDA-Public Use
  Company Number: PHHO2011RO15159

PATIENT
  Sex: Female
  Weight: 86 kg

DRUGS (12)
  1. ENALAPRIL MALEATE [Suspect]
  2. DILTIAZEM HCL [Concomitant]
     Indication: ISCHAEMIC CARDIOMYOPATHY
     Dosage: 60 MG, TID
     Route: 048
     Dates: start: 20100906, end: 20110913
  3. ENALAPRIL MALEATE [Suspect]
     Dosage: CODE NOT BROKEN
     Route: 048
     Dates: start: 20110602
  4. FUROSEMIDE [Concomitant]
     Indication: CARDIAC FAILURE CHRONIC
     Dosage: 40 MG, QID
     Route: 048
     Dates: start: 20110412, end: 20110913
  5. SPIRONOLACTONE [Concomitant]
     Indication: CARDIAC FAILURE CHRONIC
     Dosage: 20 MG, BID
     Route: 048
     Dates: start: 20101018, end: 20110913
  6. BLINDED NO TREATMENT RECEIVED [Suspect]
     Dosage: CODE NOT BROKEN
     Route: 048
     Dates: start: 20110602
  7. ALISKIREN [Suspect]
  8. HYDROCHLOROTHIAZIDE [Concomitant]
     Indication: CARDIAC FAILURE CHRONIC
     Dosage: 25 MG, QD
     Route: 048
     Dates: start: 20110816
  9. TROMBOSTOP [Concomitant]
     Indication: ATRIAL FIBRILLATION
     Dosage: 2 MG, QD
     Route: 048
     Dates: start: 20110309
  10. GLYBURIDE [Concomitant]
     Indication: DIABETES MELLITUS
     Dosage: 180 MG, BID
     Route: 048
     Dates: start: 20110309
  11. SIOFOR [Concomitant]
     Indication: DIABETES MELLITUS
     Dosage: 850 MG, BID
     Route: 048
     Dates: start: 20110309
  12. BLINDED ALISKIREN [Suspect]
     Dosage: CODE NOT BROKEN
     Route: 048
     Dates: start: 20110602

REACTIONS (3)
  - RESPIRATORY FAILURE [None]
  - CHRONIC OBSTRUCTIVE PULMONARY DISEASE [None]
  - CONCOMITANT DISEASE PROGRESSION [None]
